FAERS Safety Report 11540731 (Version 2)
Quarter: 2015Q3

REPORT INFORMATION
  Report Type: Spontaneous
  Country: US (occurrence: US)
  Receive Date: 20150923
  Receipt Date: 20150923
  Transmission Date: 20151125
  Serious: Yes (Hospitalization, Other)
  Sender: FDA-Public Use
  Company Number: US-GLAXOSMITHKLINE-A0907378A

PATIENT
  Age: 71 Year
  Sex: Male

DRUGS (11)
  1. NOVOLIN [Concomitant]
     Active Substance: INSULIN HUMAN
  2. ENALAPRIL [Concomitant]
     Active Substance: ENALAPRIL
  3. METOPROLOL TARTRATE. [Concomitant]
     Active Substance: METOPROLOL TARTRATE
  4. ADVAIR HFA [Suspect]
     Active Substance: FLUTICASONE PROPIONATE\SALMETEROL XINAFOATE
     Indication: CHRONIC OBSTRUCTIVE PULMONARY DISEASE
     Dosage: 500/50
     Route: 055
     Dates: start: 200601
  5. ADVAIR HFA [Suspect]
     Active Substance: FLUTICASONE PROPIONATE\SALMETEROL XINAFOATE
     Dosage: 250 UG, UNK
     Route: 055
  6. AVANDIA [Suspect]
     Active Substance: ROSIGLITAZONE MALEATE
     Indication: TYPE 2 DIABETES MELLITUS
     Dosage: UNK UNK, U
     Route: 048
     Dates: end: 20100923
  7. ALBUTEROL. [Concomitant]
     Active Substance: ALBUTEROL
  8. FERROUS SULFATE [Concomitant]
     Active Substance: FERROUS SULFATE\FERROUS SULFATE, DRIED
  9. VENTOLIN HFA [Suspect]
     Active Substance: ALBUTEROL SULFATE
     Indication: PRODUCT USED FOR UNKNOWN INDICATION
     Dosage: 90 UG, UNK
  10. FUROSEMIDE. [Concomitant]
     Active Substance: FUROSEMIDE
  11. SPIRIVA [Concomitant]
     Active Substance: TIOTROPIUM BROMIDE MONOHYDRATE

REACTIONS (8)
  - Bladder operation [Unknown]
  - Bladder ablation [Unknown]
  - Recurrent cancer [Unknown]
  - Renal surgery [Unknown]
  - Dyspnoea [Unknown]
  - Blood glucose decreased [Unknown]
  - Ill-defined disorder [Unknown]
  - Renal cancer [Recovered/Resolved]

NARRATIVE: CASE EVENT DATE: 20100923
